FAERS Safety Report 26205809 (Version 1)
Quarter: 2025Q4

REPORT INFORMATION
  Report Type: Spontaneous
  Country: US (occurrence: US)
  Receive Date: 20251229
  Receipt Date: 20251229
  Transmission Date: 20260117
  Serious: Yes (Disabling, Other)
  Sender: HIKMA
  Company Number: US-HIKMA PHARMACEUTICALS USA INC.-US-H14001-25-13405

PATIENT
  Age: 39 Year
  Sex: Female

DRUGS (2)
  1. LEVORPHANOL TARTRATE [Suspect]
     Active Substance: LEVORPHANOL TARTRATE
     Indication: Complex regional pain syndrome
     Dosage: 3 MILLIGRAM, QBH
     Route: 065
  2. OXYCODONE [Suspect]
     Active Substance: OXYCODONE
     Indication: Complex regional pain syndrome
     Dosage: 15 MILLIGRAM, Q6-8H, AS NEEDED
     Route: 065

REACTIONS (11)
  - Pain [Recovering/Resolving]
  - Disability [Unknown]
  - Allodynia [Unknown]
  - Neuropathy peripheral [Unknown]
  - Hypoaesthesia [Unknown]
  - Paraesthesia [Unknown]
  - Peroneal nerve palsy [Unknown]
  - Gait disturbance [Recovered/Resolved]
  - Central nervous system inflammation [Unknown]
  - Anxiety [Unknown]
  - Tremor [Recovered/Resolved]
